FAERS Safety Report 5601783-5 (Version None)
Quarter: 2008Q1

REPORT INFORMATION
  Report Type: 
  Country: None (occurrence: None)
  Receive Date: 20080124
  Receipt Date: 20080122
  Transmission Date: 20080703
  Serious: Yes (Hospitalization)
  Sender: FDA-Public Use
  Company Number: DE-MERCK-0801DEU00103

PATIENT
  Age: 44 Year
  Sex: Female

DRUGS (42)
  1. PRIMAXIN [Suspect]
     Indication: INFLAMMATION
     Route: 042
     Dates: start: 20040310, end: 20040314
  2. CANCIDAS [Suspect]
     Indication: INFLAMMATION
     Route: 042
     Dates: start: 20040311
  3. INSULIN HUMAN [Suspect]
     Indication: DIABETES MELLITUS
     Route: 042
     Dates: end: 20040314
  4. INSULIN HUMAN [Suspect]
     Route: 058
     Dates: start: 20040315
  5. HEPARIN [Suspect]
     Indication: THROMBOSIS PROPHYLAXIS
     Route: 042
     Dates: end: 20040314
  6. LASIX [Suspect]
     Indication: OEDEMA
     Route: 042
     Dates: start: 20040310, end: 20040311
  7. LASIX [Suspect]
     Route: 042
     Dates: start: 20040313, end: 20040319
  8. AMPHO-MORONAL [Suspect]
     Indication: INFECTION PROPHYLAXIS
     Route: 048
  9. ZOPICLONE [Suspect]
     Indication: SLEEP DISORDER
     Route: 048
     Dates: start: 20040304
  10. CYCLOSPORINE [Suspect]
     Indication: MULTIPLE MYELOMA
     Route: 042
  11. CYCLOSPORINE [Suspect]
     Route: 042
  12. PANTOZOL [Suspect]
     Indication: PROPHYLAXIS AGAINST GASTROINTESTINAL ULCER
     Route: 048
     Dates: start: 20040306, end: 20040309
  13. PANTOZOL [Suspect]
     Route: 048
     Dates: start: 20040312
  14. OMEPRAZOLE [Suspect]
     Indication: PROPHYLAXIS AGAINST GASTROINTESTINAL ULCER
     Route: 048
     Dates: start: 20040225, end: 20040304
  15. OMEPRAZOLE [Suspect]
     Route: 048
     Dates: start: 20040310, end: 20040311
  16. VALTREX [Suspect]
     Indication: PROPHYLAXIS
     Route: 048
     Dates: start: 20040225, end: 20040227
  17. VALTREX [Suspect]
     Route: 048
     Dates: start: 20040314
  18. TAVANIC [Suspect]
     Indication: PYREXIA
     Route: 041
     Dates: start: 20040225, end: 20040307
  19. TAVANIC [Suspect]
     Route: 041
     Dates: start: 20040315, end: 20040317
  20. TAVANIC [Suspect]
     Route: 041
     Dates: start: 20040319
  21. SPORANOX [Suspect]
     Indication: INFECTION PROPHYLAXIS
     Route: 042
     Dates: start: 20040227, end: 20040311
  22. ACIC [Suspect]
     Indication: PROPHYLAXIS
     Route: 042
     Dates: start: 20040227, end: 20040314
  23. TAZOBACTAM [Suspect]
     Indication: PYREXIA
     Route: 042
     Dates: start: 20040307, end: 20040310
  24. VANCOMYCIN [Suspect]
     Indication: PYREXIA
     Route: 042
     Dates: start: 20040307, end: 20040314
  25. NOVALGIN [Suspect]
     Indication: PAIN
     Route: 048
     Dates: start: 20040307, end: 20040310
  26. NOVALGIN [Suspect]
     Route: 048
     Dates: start: 20040319, end: 20040319
  27. DIPIDOLOR [Suspect]
     Indication: PAIN
     Route: 042
     Dates: start: 20040308, end: 20040310
  28. CLEXANE (ENOXAPARIN SODIUM) [Suspect]
     Indication: THROMBOSIS PROPHYLAXIS
     Route: 058
     Dates: start: 20040314
  29. FLOXAL [Concomitant]
     Indication: PROPHYLAXIS
     Route: 047
     Dates: end: 20040311
  30. GYNO-PEVARYL [Concomitant]
     Indication: VULVOVAGINAL MYCOTIC INFECTION
     Route: 065
     Dates: end: 20040311
  31. DEXTROSE [Concomitant]
     Indication: PARENTERAL NUTRITION
     Route: 041
     Dates: end: 20040317
  32. SODIUM CHLORIDE [Concomitant]
  33. SODIUM CHLORIDE [Concomitant]
     Route: 041
  34. CHLORHEXIDINE GLUCONATE [Concomitant]
     Route: 065
  35. TPN ELECTROLYTES IN PLASTIC CONTAINER [Concomitant]
     Indication: PARENTERAL NUTRITION
     Route: 042
     Dates: end: 20040307
  36. GENTIAN VIOLET [Concomitant]
     Route: 061
     Dates: start: 20040310, end: 20040315
  37. PHYTONADIONE [Concomitant]
     Route: 065
     Dates: start: 20040308, end: 20040308
  38. JONOSTERIL [Concomitant]
     Route: 042
     Dates: start: 20040310, end: 20040310
  39. JONOSTERIL [Concomitant]
     Route: 042
     Dates: start: 20040315, end: 20040315
  40. MAGNESIUM (UNSPECIFIED) [Concomitant]
     Route: 048
     Dates: start: 20040317
  41. LIPOSIC [Concomitant]
     Route: 047
     Dates: start: 20040318, end: 20040318
  42. KALINOR [Concomitant]
     Route: 065
     Dates: start: 20040318

REACTIONS (1)
  - STEVENS-JOHNSON SYNDROME [None]
